FAERS Safety Report 6814397-6 (Version None)
Quarter: 2010Q3

REPORT INFORMATION
  Report Type: 
  Country: None (occurrence: None)
  Receive Date: 20100702
  Receipt Date: 20100628
  Transmission Date: 20110219
  Serious: Yes (Other)
  Sender: FDA-Public Use
  Company Number: US-BRISTOL-MYERS SQUIBB COMPANY-15170327

PATIENT
  Age: 63 Year
  Sex: Female

DRUGS (1)
  1. MEGESTROL ACETATE [Suspect]
     Indication: BREAST CANCER
     Dosage: RECEIVED FOR MORE THAN 7 YEARS.

REACTIONS (1)
  - MENINGIOMA [None]
